FAERS Safety Report 8904124 (Version 2)
Quarter: 2013Q1

REPORT INFORMATION
  Report Type: Spontaneous
  Country: PH (occurrence: PH)
  Receive Date: 20121113
  Receipt Date: 20130102
  Transmission Date: 20140127
  Serious: Yes (Death)
  Sender: FDA-Public Use
  Company Number: PH-009507513-1211PHL003915

PATIENT
  Age: 47 Year
  Sex: Male

DRUGS (3)
  1. JANUVIA [Suspect]
     Indication: DIABETES MELLITUS
     Dosage: 100 MG, QD
     Route: 048
     Dates: start: 20120115
  2. METFORMIN [Concomitant]
     Dosage: UNK, QD
  3. MORPHINE [Concomitant]
     Indication: PAIN
     Dosage: 10 MG, PRN

REACTIONS (1)
  - Lung neoplasm malignant [Fatal]
